FAERS Safety Report 20951998 (Version 1)
Quarter: 2022Q2

REPORT INFORMATION
  Report Type: Spontaneous
  Country: US (occurrence: None)
  Receive Date: 20220611
  Receipt Date: 20220611
  Transmission Date: 20220721
  Serious: Yes (Hospitalization, Disabling)
  Sender: FDA-Public Use
  Company Number: None

PATIENT
  Age: 51 Year
  Sex: Male
  Weight: 103.5 kg

DRUGS (2)
  1. INVEGA SUSTENNA [Suspect]
     Active Substance: PALIPERIDONE PALMITATE
     Indication: Post-traumatic stress disorder
  2. INVEGA SUSTENNA [Suspect]
     Active Substance: PALIPERIDONE PALMITATE
     Indication: Schizoaffective disorder

REACTIONS (9)
  - Adverse drug reaction [None]
  - Headache [None]
  - Tinnitus [None]
  - Gynaecomastia [None]
  - Fatigue [None]
  - Cognitive disorder [None]
  - Memory impairment [None]
  - Loss of libido [None]
  - Confusional state [None]

NARRATIVE: CASE EVENT DATE: 20220420
